FAERS Safety Report 11506543 (Version 1)
Quarter: 2015Q3

REPORT INFORMATION
  Report Type: Spontaneous
  Country: US (occurrence: None)
  Receive Date: 20150914
  Receipt Date: 20150914
  Transmission Date: 20151125
  Serious: Yes (Death)
  Sender: FDA-Public Use
  Company Number: None

PATIENT
  Age: 21 Year
  Sex: Male
  Weight: 68.04 kg

DRUGS (1)
  1. CLONAZEPAM. [Suspect]
     Active Substance: CLONAZEPAM
     Indication: ANXIETY
     Dates: start: 20150129, end: 20150202

REACTIONS (5)
  - Anxiety [None]
  - Depression [None]
  - Intentional self-injury [None]
  - Dysarthria [None]
  - Aggression [None]

NARRATIVE: CASE EVENT DATE: 20150202
